FAERS Safety Report 14004221 (Version 2)
Quarter: 2017Q4

REPORT INFORMATION
  Report Type: Spontaneous
  Country: US (occurrence: US)
  Receive Date: 20170922
  Receipt Date: 20171109
  Transmission Date: 20180321
  Serious: Yes (Other)
  Sender: FDA-Public Use
  Company Number: US-JNJFOC-20170827622

PATIENT
  Age: 66 Year
  Sex: Female

DRUGS (9)
  1. POMALYST [Suspect]
     Active Substance: POMALIDOMIDE
     Indication: PLASMA CELL MYELOMA
     Route: 048
     Dates: start: 20170701, end: 20170726
  2. DEXAMETHASONE. [Suspect]
     Active Substance: DEXAMETHASONE
     Indication: PLASMA CELL MYELOMA
     Route: 042
     Dates: start: 20170327
  3. DULOXETINE. [Concomitant]
     Active Substance: DULOXETINE
     Indication: DEPRESSION
     Route: 065
     Dates: start: 20170615
  4. FUROSEMIDE. [Concomitant]
     Active Substance: FUROSEMIDE
     Indication: SWELLING
     Route: 065
     Dates: start: 20170715, end: 20170717
  5. ESTRADIOL. [Concomitant]
     Active Substance: ESTRADIOL
     Indication: OESTROGEN THERAPY
     Route: 065
     Dates: start: 20170426, end: 20170721
  6. FENTANYL. [Concomitant]
     Active Substance: FENTANYL
     Indication: PAIN MANAGEMENT
     Route: 065
     Dates: start: 20170714
  7. OXYCODONE/ACETAMINOPHEN [Concomitant]
     Active Substance: ACETAMINOPHEN\OXYCODONE HYDROCHLORIDE
     Indication: PAIN MANAGEMENT
     Route: 065
     Dates: start: 20170706
  8. AMLODIPINE [Concomitant]
     Active Substance: AMLODIPINE BESYLATE
     Indication: HYPERTENSION
     Route: 065
  9. LEVAQUIN [Suspect]
     Active Substance: LEVOFLOXACIN
     Indication: INFECTION
     Route: 048
     Dates: start: 20170725, end: 20170731

REACTIONS (3)
  - Dizziness [Not Recovered/Not Resolved]
  - Vision blurred [Not Recovered/Not Resolved]
  - Nausea [Not Recovered/Not Resolved]

NARRATIVE: CASE EVENT DATE: 20170726
